FAERS Safety Report 15563146 (Version 1)
Quarter: 2018Q4

REPORT INFORMATION
  Report Type: Spontaneous
  Country: ES (occurrence: ES)
  Receive Date: 20181029
  Receipt Date: 20181029
  Transmission Date: 20190205
  Serious: Yes (Other)
  Sender: FDA-Public Use
  Company Number: ES-SA-2018SA293401

PATIENT
  Sex: Male

DRUGS (2)
  1. CEREZYME [Suspect]
     Active Substance: IMIGLUCERASE
     Indication: GAUCHER^S DISEASE
     Route: 041
     Dates: end: 2000
  2. CEREZYME [Suspect]
     Active Substance: IMIGLUCERASE
     Dosage: 60 MG/KG, QOW,EVERY 15 DAYS
     Route: 041
     Dates: start: 2005, end: 2009

REACTIONS (12)
  - Condition aggravated [Unknown]
  - Petechiae [Unknown]
  - Hepatosplenomegaly [Recovered/Resolved]
  - Nasopharyngitis [Unknown]
  - Asthenia [Unknown]
  - Cytopenia [Recovered/Resolved]
  - Loss of personal independence in daily activities [Unknown]
  - Infection parasitic [Unknown]
  - Haematoma [Unknown]
  - Epistaxis [Unknown]
  - X-ray limb [Recovered/Resolved]
  - Bone pain [Unknown]
